FAERS Safety Report 5082208-8 (Version None)
Quarter: 2006Q3

REPORT INFORMATION
  Report Type: 
  Country: None (occurrence: None)
  Receive Date: 20060720
  Receipt Date: 20060426
  Transmission Date: 20061208
  Serious: Yes (Hospitalization)
  Sender: FDA-Public Use
  Company Number: 2006057379

PATIENT
  Age: 47 Year
  Sex: Male

DRUGS (7)
  1. CELEBREX [Suspect]
     Indication: ARTHRITIS
     Dosage: 400 MG (200 MG,2 IN 1 D)
     Dates: start: 20000101, end: 20020101
  2. ALL OTHER THERAPEUTIC PRODUCTS (ALL OTHER THERAPEUTIC PRODUCTS) [Concomitant]
  3. VIOXX [Concomitant]
  4. IBUPROFEN [Concomitant]
  5. ASPIRIN [Concomitant]
  6. DARVOCET [Concomitant]
  7. MORPHINE [Concomitant]

REACTIONS (2)
  - ARTERIAL OCCLUSIVE DISEASE [None]
  - MYOCARDIAL INFARCTION [None]
